FAERS Safety Report 5311207-3 (Version None)
Quarter: 2007Q2

REPORT INFORMATION
  Report Type: 
  Country: None (occurrence: None)
  Receive Date: 20070430
  Receipt Date: 20070416
  Transmission Date: 20071010
  Serious: Yes (Hospitalization)
  Sender: FDA-Public Use
  Company Number: JP-ROCHE-485814

PATIENT
  Age: 32 Year
  Sex: Male

DRUGS (3)
  1. TAMIFLU [Suspect]
     Route: 048
     Dates: start: 20070222, end: 20070222
  2. LOXONIN [Concomitant]
     Route: 048
  3. KAKKON-TO [Concomitant]
     Dosage: DOSE FORM: ORAL FORMULATION (NOT OTHREWISE SPECIFIED).
     Route: 048
     Dates: start: 20070222, end: 20070222

REACTIONS (1)
  - ABNORMAL BEHAVIOUR [None]
